FAERS Safety Report 18944861 (Version 1)
Quarter: 2021Q1

REPORT INFORMATION
  Report Type: Spontaneous
  Country: US (occurrence: US)
  Receive Date: 20210226
  Receipt Date: 20210226
  Transmission Date: 20210420
  Serious: Yes (Hospitalization, Other)
  Sender: FDA-Public Use
  Company Number: US-ELI_LILLY_AND_COMPANY-US202102012082

PATIENT
  Sex: Female

DRUGS (7)
  1. GLUCOSE [Suspect]
     Active Substance: DEXTROSE
     Indication: BLOOD GLUCOSE DECREASED
     Dosage: UNK UNK, UNKNOWN
     Route: 042
  2. TAPIZOL [Suspect]
     Active Substance: LANSOPRAZOLE
     Indication: HYPERTHYROIDISM
     Dosage: UNK UNK, UNKNOWN
     Route: 065
  3. LANTUS [Suspect]
     Active Substance: INSULIN GLARGINE
     Indication: PRODUCT USED FOR UNKNOWN INDICATION
     Dosage: UNK UNK, UNKNOWN
     Route: 065
     Dates: start: 2007
  4. HUMALOG [Suspect]
     Active Substance: INSULIN LISPRO
     Dosage: UNK UNK, PRN
     Route: 058
  5. HUMALOG [Suspect]
     Active Substance: INSULIN LISPRO
     Indication: TYPE 1 DIABETES MELLITUS
     Dosage: UNK UNK, PRN
     Route: 058
  6. HUMALOG [Suspect]
     Active Substance: INSULIN LISPRO
     Dosage: UNK UNK, PRN
     Route: 058
  7. HUMALOG [Suspect]
     Active Substance: INSULIN LISPRO
     Indication: TYPE 1 DIABETES MELLITUS
     Dosage: UNK UNK, PRN
     Route: 058

REACTIONS (13)
  - Blood glucose decreased [Unknown]
  - Fall [Unknown]
  - Head injury [Unknown]
  - Abdominal distension [Unknown]
  - Loss of consciousness [Unknown]
  - Seizure [Unknown]
  - Blood glucose increased [Unknown]
  - Skin striae [Unknown]
  - Diabetic retinopathy [Unknown]
  - Diabetic coma [Unknown]
  - Hypertension [Unknown]
  - Loss of consciousness [Unknown]
  - Hyperthyroidism [Unknown]

NARRATIVE: CASE EVENT DATE: 2014
